FAERS Safety Report 19713046 (Version 1)
Quarter: 2021Q3

REPORT INFORMATION
  Report Type: Spontaneous
  Country: US (occurrence: US)
  Receive Date: 20210816
  Receipt Date: 20210816
  Transmission Date: 20211014
  Serious: Yes (Other)
  Sender: FDA-Public Use
  Company Number: NVSC2021US183314

PATIENT
  Sex: Male

DRUGS (1)
  1. HYCAMTIN [Suspect]
     Active Substance: TOPOTECAN HYDROCHLORIDE
     Indication: LUNG NEOPLASM MALIGNANT
     Dosage: 4 MG, DAILY (DAYS 1?5)
     Route: 048
     Dates: start: 202103

REACTIONS (2)
  - Lung neoplasm malignant [Unknown]
  - Malignant neoplasm progression [Unknown]
